FAERS Safety Report 10663866 (Version 1)
Quarter: 2014Q4

REPORT INFORMATION
  Report Type: Spontaneous
  Country: US (occurrence: None)
  Receive Date: 20141218
  Receipt Date: 20141218
  Transmission Date: 20150529
  Serious: Yes (Disabling)
  Sender: FDA-Public Use
  Company Number: None

PATIENT
  Age: 51 Year
  Sex: Female
  Weight: 64.41 kg

DRUGS (1)
  1. LATUDA [Suspect]
     Active Substance: LURASIDONE HYDROCHLORIDE
     Indication: BIPOLAR DISORDER
     Dosage: 1 PILL
     Route: 048
     Dates: start: 20140515, end: 20141217

REACTIONS (10)
  - Atrophy [None]
  - Arthralgia [None]
  - Muscle atrophy [None]
  - Metabolic disorder [None]
  - Tendonitis [None]
  - Arthritis [None]
  - Fat tissue increased [None]
  - Tendon disorder [None]
  - Pain in extremity [None]
  - Gait disturbance [None]

NARRATIVE: CASE EVENT DATE: 20141217
